FAERS Safety Report 4989210-2 (Version None)
Quarter: 2006Q2

REPORT INFORMATION
  Report Type: 
  Country: None (occurrence: None)
  Receive Date: 20060425
  Receipt Date: 20060411
  Transmission Date: 20061013
  Serious: Yes (Other)
  Sender: FDA-Public Use
  Company Number: 2006050183

PATIENT
  Age: 62 Year
  Sex: Female

DRUGS (7)
  1. LIPITOR [Suspect]
     Indication: BLOOD CHOLESTEROL INCREASED
     Dosage: 10 MG (10 MG, 1 IN 1 D)
     Dates: start: 20051101, end: 20060221
  2. CELEBREX [Suspect]
     Indication: KNEE ARTHROPLASTY
     Dosage: 200 MG (200 MG, 1 IN 1 D)
  3. CELEBREX [Suspect]
     Indication: MYALGIA
     Dosage: 200 MG (200 MG, 1 IN 1 D)
  4. NAPROXEN [Suspect]
     Indication: PAIN
     Dosage: (500 MG)
     Dates: start: 20060101
  5. LOPRESSOR [Concomitant]
  6. MULTIVITAMIN [Concomitant]
  7. ASPIRIN [Concomitant]

REACTIONS (4)
  - BLOOD CHOLESTEROL INCREASED [None]
  - DRUG INEFFECTIVE [None]
  - POLYMYALGIA RHEUMATICA [None]
  - RED BLOOD CELL SEDIMENTATION RATE INCREASED [None]
